FAERS Safety Report 25818965 (Version 1)
Quarter: 2025Q3

REPORT INFORMATION
  Report Type: Spontaneous
  Country: JP (occurrence: JP)
  Receive Date: 20250918
  Receipt Date: 20250918
  Transmission Date: 20251020
  Serious: Yes (Hospitalization, Other)
  Sender: The J.Molner Company
  Company Number: JP-THE J. MOLNER COMPANY-202509000048

PATIENT

DRUGS (7)
  1. HYDROCORTISONE BUTYRATE [Suspect]
     Active Substance: HYDROCORTISONE BUTYRATE
     Indication: Adrenocortical steroid therapy
     Route: 048
  2. HYDROCORTISONE BUTYRATE [Suspect]
     Active Substance: HYDROCORTISONE BUTYRATE
     Indication: Adrenal insufficiency
     Route: 048
  3. CLOBETASOL PROPIONATE [Suspect]
     Active Substance: CLOBETASOL PROPIONATE
     Indication: Benign familial pemphigus
     Route: 061
  4. BETAMETHASONE [Suspect]
     Active Substance: BETAMETHASONE
     Indication: Benign familial pemphigus
     Route: 061
  5. BETAMETHASONE [Suspect]
     Active Substance: BETAMETHASONE
     Route: 061
  6. BETAMETHASONE [Suspect]
     Active Substance: BETAMETHASONE
     Route: 061
  7. APREMILAST [Concomitant]
     Active Substance: APREMILAST
     Indication: Product used for unknown indication
     Route: 065

REACTIONS (9)
  - Compression fracture [Unknown]
  - Glucose tolerance impaired [Unknown]
  - Steroid withdrawal syndrome [Unknown]
  - Cushing^s syndrome [Unknown]
  - Condition aggravated [Unknown]
  - Oral candidiasis [Unknown]
  - Hypotension [Unknown]
  - Psychiatric symptom [Unknown]
  - Insomnia [None]
